FAERS Safety Report 10035537 (Version 1)
Quarter: 2014Q1

REPORT INFORMATION
  Report Type: Spontaneous
  Country: US (occurrence: US)
  Receive Date: 20140325
  Receipt Date: 20140325
  Transmission Date: 20141002
  Serious: No
  Sender: FDA-Public Use
  Company Number: US-PFIZER INC-2014083562

PATIENT
  Sex: Male

DRUGS (2)
  1. INLYTA [Suspect]
     Indication: RENAL CANCER
     Dosage: 5 MG, 2X/DAY
     Dates: start: 20140129
  2. ALACEPRIL [Suspect]
     Indication: HYPERTENSION
     Dosage: 40 MG, UNK

REACTIONS (2)
  - Headache [Unknown]
  - Blood pressure fluctuation [Unknown]
